FAERS Safety Report 19029555 (Version 3)
Quarter: 2021Q2

REPORT INFORMATION
  Report Type: Report from Study
  Country: US (occurrence: US)
  Receive Date: 20210318
  Receipt Date: 20210511
  Transmission Date: 20210717
  Serious: Yes (Hospitalization)
  Sender: FDA-Public Use
  Company Number: US-OTSUKA-2021_007231AA

PATIENT
  Sex: Female

DRUGS (2)
  1. ASTX727 [Suspect]
     Active Substance: CEDAZURIDINE\DECITABINE
     Indication: MYELODYSPLASTIC SYNDROME
     Dosage: 135 MG (35 MG OF DECITABINE AND 100 MG OF CEDAZURIDINE), QD 5 DAYS OF 28 DAY CYCLE
     Route: 048
     Dates: start: 20210119, end: 2021
  2. ASTX727 [Suspect]
     Active Substance: CEDAZURIDINE\DECITABINE
     Dosage: 135 MG (35 MG OF DECITABINE AND 100 MG OF CEDAZURIDINE), QD 3 DAYS OF 28 DAY CYCLE
     Route: 048
     Dates: start: 2021

REACTIONS (3)
  - Malaise [Unknown]
  - Neutropenia [Not Recovered/Not Resolved]
  - Nonspecific reaction [Not Recovered/Not Resolved]
